FAERS Safety Report 6183182-3 (Version None)
Quarter: 2009Q2

REPORT INFORMATION
  Report Type: 
  Country: None (occurrence: None)
  Receive Date: 20090506
  Receipt Date: 20090430
  Transmission Date: 20091009
  Serious: Yes (Hospitalization)
  Sender: FDA-Public Use
  Company Number: LTI2009A00132

PATIENT
  Age: 74 Year
  Sex: Male

DRUGS (6)
  1. ACTOS [Suspect]
     Indication: TYPE 2 DIABETES MELLITUS
     Dosage: 30 MG (30 MG, 1 IN 1 D), ORAL
     Route: 048
     Dates: end: 20081024
  2. GLUCOPHAGE [Suspect]
     Indication: TYPE 2 DIABETES MELLITUS
     Dosage: 2000 MG (1000 MG, 2 IN 1 D), ORAL
     Route: 048
     Dates: end: 20081024
  3. GLYBURIDE [Suspect]
     Indication: TYPE 2 DIABETES MELLITUS
     Dosage: 15 MG (5 MG, 3 IN 1 D), ORAL
     Route: 048
     Dates: end: 20081024
  4. PRAVADUAL (PRAVASTATINE, ACETYLSALICYLIC ACID) [Concomitant]
  5. COAPROVEL (HYDROCHLOROTHIAZIDE, IRBESARTAN) [Concomitant]
  6. ALDALIX (SPIRONOLACTONE, FUROSEMIDE) [Concomitant]

REACTIONS (5)
  - CHEST PAIN [None]
  - FALL [None]
  - HYPOGLYCAEMIA [None]
  - MUSCULOSKELETAL CHEST PAIN [None]
  - RENAL FAILURE [None]
